FAERS Safety Report 7915853-X (Version None)
Quarter: 2011Q4

REPORT INFORMATION
  Report Type: 
  Country: None (occurrence: None)
  Receive Date: 20111115
  Receipt Date: 20111031
  Transmission Date: 20120403
  Serious: Yes (Hospitalization)
  Sender: FDA-Public Use
  Company Number: US-ARROW GEN-2011-18667

PATIENT
  Age: 9 Year
  Sex: Female

DRUGS (1)
  1. AMLODIPINE [Suspect]
     Indication: HYPERTENSION
     Dosage: 12.5 MG, DAILY
     Route: 065

REACTIONS (3)
  - WEIGHT GAIN POOR [None]
  - GINGIVAL HYPERPLASIA [None]
  - FAILURE TO THRIVE [None]
